FAERS Safety Report 21499326 (Version 2)
Quarter: 2022Q4

REPORT INFORMATION
  Report Type: Spontaneous
  Country: US (occurrence: US)
  Receive Date: 20221024
  Receipt Date: 20221027
  Transmission Date: 20230113
  Serious: Yes (Other)
  Sender: FDA-Public Use
  Company Number: US-UPSHER-SMITH LABORATORIES, LLC-2022USL00629

PATIENT
  Sex: Male
  Weight: 86.168 kg

DRUGS (9)
  1. HALOPERIDOL [Suspect]
     Active Substance: HALOPERIDOL
     Indication: Sleep disorder
     Dosage: 5 MG, 1X/DAY AT BEDTIME
     Dates: start: 202208, end: 202208
  2. HALOPERIDOL [Suspect]
     Active Substance: HALOPERIDOL
     Indication: Schizophrenia
     Dosage: 10 MG, 1X/DAY AT BEDTIME
     Dates: start: 202208, end: 202208
  3. HALOPERIDOL [Suspect]
     Active Substance: HALOPERIDOL
     Indication: Impulsive behaviour
     Dosage: 20 MG, 1X/DAY AT BEDTIME
     Dates: start: 202208, end: 202208
  4. HALDOL [Suspect]
     Active Substance: HALOPERIDOL
     Indication: Schizophrenia
     Dosage: 200 MG, EVERY 3 WEEKS
     Route: 030
     Dates: start: 202208
  5. HALDOL [Suspect]
     Active Substance: HALOPERIDOL
     Indication: Impulsive behaviour
  6. INVEGA SUSTENNA [Concomitant]
     Active Substance: PALIPERIDONE PALMITATE
     Dosage: 156 MG, EVERY 3 WEEKS
     Dates: start: 202203
  7. TRAMADOL [Concomitant]
     Active Substance: TRAMADOL
  8. TYLENOL [Concomitant]
     Active Substance: ACETAMINOPHEN
  9. MELATONIN [Concomitant]
     Active Substance: MELATONIN

REACTIONS (15)
  - Suicidal ideation [Recovered/Resolved]
  - Hallucination, auditory [Recovered/Resolved]
  - Retching [Unknown]
  - Anhedonia [Recovering/Resolving]
  - Myalgia [Recovering/Resolving]
  - Pain [Unknown]
  - Insomnia [Not Recovered/Not Resolved]
  - Unevaluable event [Unknown]
  - Depression [Unknown]
  - Initial insomnia [Unknown]
  - Nausea [Unknown]
  - Vomiting [Unknown]
  - Libido increased [Unknown]
  - Erectile dysfunction [Unknown]
  - Anxiety [Unknown]

NARRATIVE: CASE EVENT DATE: 20220101
